FAERS Safety Report 6903434-6 (Version None)
Quarter: 2010Q3

REPORT INFORMATION
  Report Type: 
  Country: None (occurrence: None)
  Receive Date: 20100803
  Receipt Date: 20081002
  Transmission Date: 20110219
  Serious: No
  Sender: FDA-Public Use
  Company Number: US-PFIZER INC-2008083703

PATIENT
  Sex: Female
  Weight: 92.99 kg

DRUGS (3)
  1. LYRICA [Suspect]
     Indication: FIBROMYALGIA
     Route: 048
     Dates: start: 20080917, end: 20080927
  2. FLEXERIL [Concomitant]
  3. TOPROL-XL [Concomitant]
     Dates: end: 20080801

REACTIONS (2)
  - BURNING SENSATION [None]
  - RASH [None]
